FAERS Safety Report 6214923-4 (Version None)
Quarter: 2009Q2

REPORT INFORMATION
  Report Type: 
  Country: None (occurrence: None)
  Receive Date: 20090604
  Receipt Date: 20090601
  Transmission Date: 20091009
  Serious: Yes (Hospitalization)
  Sender: FDA-Public Use
  Company Number: PL-ABBOTT-09P-129-0501667-00

PATIENT
  Sex: Male
  Weight: 62 kg

DRUGS (6)
  1. KALETRA [Suspect]
     Indication: HIV INFECTION
     Dosage: 800/200 MILLIGRAMS 2X2 TABL
     Route: 048
     Dates: start: 20080109
  2. TENOFOVIR [Suspect]
     Indication: HIV INFECTION
     Dosage: 300/200 1X1 TABL
     Route: 048
     Dates: start: 20080609, end: 20090130
  3. TRUVADA [Suspect]
     Indication: HIV INFECTION
     Route: 048
     Dates: start: 20080609, end: 20090130
  4. FTC/TDF [Concomitant]
     Indication: DRUG USE FOR UNKNOWN INDICATION
     Dates: start: 20080109
  5. INSULIN [Concomitant]
     Indication: DIABETES MELLITUS
     Dosage: RELATED TO GLYCEMIA
     Route: 058
     Dates: start: 20060601
  6. DOXEPIN HCL [Concomitant]
     Indication: DEPRESSION
     Route: 048
     Dates: start: 20080901

REACTIONS (2)
  - OESOPHAGEAL CANDIDIASIS [None]
  - RENAL FAILURE [None]
